FAERS Safety Report 4792882-9 (Version None)
Quarter: 2005Q4

REPORT INFORMATION
  Report Type: 
  Country: None (occurrence: None)
  Receive Date: 20051010
  Receipt Date: 20050308
  Transmission Date: 20060501
  Serious: Yes (Other)
  Sender: FDA-Public Use
  Company Number: PHEH2005US02949

PATIENT
  Age: 71 Year
  Sex: Female
  Weight: 62 kg

DRUGS (4)
  1. ZOMETA [Suspect]
     Indication: OSTEITIS DEFORMANS
     Dosage: 4MG ONCE
     Dates: start: 20050208
  2. ACCUPRIL [Concomitant]
     Dosage: 20 MG, QD
     Route: 048
  3. ESTROGEN NOS [Concomitant]
     Dosage: 50 MCG BIW
     Route: 062
  4. IMITREX [Concomitant]
     Dosage: PRN

REACTIONS (4)
  - ABDOMINAL PAIN UPPER [None]
  - ALOPECIA [None]
  - HYPERTENSION [None]
  - HYPOTRICHOSIS [None]
